FAERS Safety Report 9448729 (Version 1)
Quarter: 2013Q3

REPORT INFORMATION
  Report Type: Spontaneous
  Country: JP (occurrence: JP)
  Receive Date: 20130808
  Receipt Date: 20130808
  Transmission Date: 20140515
  Serious: Yes (Other)
  Sender: FDA-Public Use
  Company Number: JP-JNJFOC-20080403455

PATIENT
  Age: 49 Year
  Sex: Male

DRUGS (6)
  1. TOPINA [Suspect]
     Indication: TEMPORAL LOBE EPILEPSY
     Route: 048
     Dates: start: 20080215, end: 20130221
  2. TOPINA [Suspect]
     Indication: TEMPORAL LOBE EPILEPSY
     Route: 048
     Dates: start: 20080123, end: 20130214
  3. TOPINA [Suspect]
     Indication: TEMPORAL LOBE EPILEPSY
     Route: 048
     Dates: start: 20080116, end: 20130122
  4. TOPINA [Suspect]
     Indication: TEMPORAL LOBE EPILEPSY
     Route: 048
     Dates: start: 20080110, end: 20130115
  5. PHENYTOIN [Concomitant]
     Route: 048
  6. ACETAZOLAMIDE [Concomitant]
     Route: 048

REACTIONS (3)
  - Agranulocytosis [Recovered/Resolved]
  - Neutrophil percentage decreased [Recovered/Resolved]
  - Oral infection [Recovered/Resolved]
